FAERS Safety Report 5441743-0 (Version None)
Quarter: 2007Q3

REPORT INFORMATION
  Report Type: 
  Country: None (occurrence: None)
  Receive Date: 20070829
  Receipt Date: 20070829
  Transmission Date: 20080115
  Serious: Yes (Hospitalization)
  Sender: FDA-Public Use
  Company Number: None

PATIENT
  Age: 83 Year
  Sex: Male

DRUGS (2)
  1. MELPHALAN [Suspect]
     Indication: MYELODYSPLASTIC SYNDROME
     Dosage: 2MG EVERY DAY PO
     Route: 048
     Dates: start: 20070620, end: 20070709
  2. THALIDOMIDE [Suspect]
     Indication: MYELODYSPLASTIC SYNDROME
     Dosage: 200MG EVERY DAY PO
     Route: 048
     Dates: start: 20070608

REACTIONS (3)
  - ANAEMIA [None]
  - NEUTROPENIA [None]
  - RENAL FAILURE ACUTE [None]
